FAERS Safety Report 9940169 (Version 1)
Quarter: 2014Q1

REPORT INFORMATION
  Report Type: Report from Study
  Country: US (occurrence: US)
  Receive Date: 20140303
  Receipt Date: 20140303
  Transmission Date: 20141002
  Serious: No
  Sender: FDA-Public Use
  Company Number: US-ABBVIE-13P-163-1035319-00

PATIENT
  Age: 29 Year
  Sex: Female
  Weight: 49.49 kg

DRUGS (1)
  1. HUMIRA [Suspect]
     Indication: CROHN^S DISEASE
     Dosage: CROHN^S STARTER PACK
     Dates: start: 20130107, end: 20130107

REACTIONS (7)
  - Anal fistula [Unknown]
  - Migraine [Recovered/Resolved]
  - Pyrexia [Recovered/Resolved]
  - Diarrhoea [Recovered/Resolved]
  - Abdominal discomfort [Recovered/Resolved]
  - Influenza like illness [Recovered/Resolved]
  - Anorectal discomfort [Unknown]
